FAERS Safety Report 6464059-2 (Version None)
Quarter: 2009Q4

REPORT INFORMATION
  Report Type: 
  Country: None (occurrence: None)
  Receive Date: 20091130
  Receipt Date: 20091130
  Transmission Date: 20100525
  Serious: Yes (Hospitalization)
  Sender: FDA-Public Use
  Company Number: None

PATIENT
  Age: 66 Year
  Sex: Female
  Weight: 75 kg

DRUGS (1)
  1. HUMIRA [Suspect]
     Indication: RHEUMATOID ARTHRITIS
     Dosage: 40 MG EVERY 2 WEEKS SQ
     Route: 058
     Dates: start: 20060101, end: 20091113

REACTIONS (5)
  - ARTHRITIS INFECTIVE [None]
  - CELLULITIS [None]
  - MENTAL STATUS CHANGES [None]
  - SEPSIS [None]
  - TENOSYNOVITIS [None]
